FAERS Safety Report 11480208 (Version 3)
Quarter: 2015Q4

REPORT INFORMATION
  Report Type: Spontaneous
  Country: US (occurrence: None)
  Receive Date: 20150909
  Receipt Date: 20151005
  Transmission Date: 20160304
  Serious: Yes (Hospitalization, Other)
  Sender: FDA-Public Use
  Company Number: US-MDT-ADR-2015-01745

PATIENT
  Age: 51 Year
  Sex: Female

DRUGS (2)
  1. SUFENTANIL INTRATHECAL 50MCG/ML [Suspect]
     Active Substance: SUFENTANIL
     Dosage: 15.108 MCG/DAY
  2. COMPOUNDED BACLOFEN INTRATHECAL 555MCG/ML [Suspect]
     Active Substance: BACLOFEN
     Dosage: 167.7 MCG/DAY

REACTIONS (11)
  - Nephrolithiasis [None]
  - Hyperhidrosis [None]
  - Anxiety [None]
  - Pyrexia [None]
  - Pain [None]
  - Drug withdrawal syndrome [None]
  - Pruritus [None]
  - Nausea [None]
  - Feeling of body temperature change [None]
  - Vomiting [None]
  - Muscle spasticity [None]
